FAERS Safety Report 9727472 (Version 1)
Quarter: 2013Q4

REPORT INFORMATION
  Report Type: Spontaneous
  Country: US (occurrence: US)
  Receive Date: 20131203
  Receipt Date: 20131203
  Transmission Date: 20140711
  Serious: Yes (Hospitalization, Other)
  Sender: FDA-Public Use
  Company Number: US-BAYER-2013-144942

PATIENT
  Sex: Female

DRUGS (2)
  1. GIANVI [Suspect]
     Dosage: UNK
     Dates: start: 201012, end: 20121023
  2. YAZ [Suspect]
     Dosage: UNK
     Dates: start: 2010, end: 201012

REACTIONS (9)
  - Intracranial venous sinus thrombosis [None]
  - Jugular vein thrombosis [None]
  - Deep vein thrombosis [None]
  - Injury [None]
  - Pain [None]
  - General physical health deterioration [None]
  - Anxiety [None]
  - Emotional distress [None]
  - Pain [None]
